FAERS Safety Report 8322084-0 (Version None)
Quarter: 2012Q2

REPORT INFORMATION
  Report Type: 
  Country: None (occurrence: None)
  Receive Date: 20120430
  Receipt Date: 20091217
  Transmission Date: 20120825
  Serious: No
  Sender: FDA-Public Use
  Company Number: US-TEVA-2009029746

PATIENT
  Sex: Male

DRUGS (2)
  1. NUVIGIL [Suspect]
     Indication: SLEEP APNOEA SYNDROME
     Route: 048
     Dates: start: 20090601, end: 20091215
  2. ANAFRANIL [Concomitant]

REACTIONS (4)
  - FEELING ABNORMAL [None]
  - PAIN [None]
  - DEPRESSION [None]
  - INTENTIONAL DRUG MISUSE [None]
